FAERS Safety Report 16078465 (Version 1)
Quarter: 2019Q1

REPORT INFORMATION
  Report Type: Spontaneous
  Country: US (occurrence: US)
  Receive Date: 20190315
  Receipt Date: 20190315
  Transmission Date: 20190418
  Serious: No
  Sender: FDA-Public Use
  Company Number: US-UNITED THERAPEUTICS-UNT-2019-004649

PATIENT
  Sex: Male

DRUGS (1)
  1. TYVASO [Suspect]
     Active Substance: TREPROSTINIL
     Indication: PULMONARY ARTERIAL HYPERTENSION
     Dosage: 24 ?G, QID
     Dates: start: 20190220

REACTIONS (5)
  - Pain in jaw [Unknown]
  - Dyspnoea exertional [Unknown]
  - Headache [Not Recovered/Not Resolved]
  - Diarrhoea [Not Recovered/Not Resolved]
  - Cough [Unknown]
